FAERS Safety Report 7322719-5 (Version None)
Quarter: 2011Q1

REPORT INFORMATION
  Report Type: 
  Country: None (occurrence: None)
  Receive Date: 20110301
  Receipt Date: 20100505
  Transmission Date: 20110831
  Serious: No
  Sender: FDA-Public Use
  Company Number: A0858403A

PATIENT
  Age: 8 Year
  Sex: Male

DRUGS (4)
  1. ZIDOVUDINE [Concomitant]
  2. KALETRA [Concomitant]
  3. EPIVIR [Concomitant]
  4. ZIAGEN [Suspect]
     Indication: HIV INFECTION
     Dosage: 1ML PER DAY
     Route: 048

REACTIONS (2)
  - DIARRHOEA [None]
  - VOMITING [None]
